FAERS Safety Report 18214466 (Version 2)
Quarter: 2020Q3

REPORT INFORMATION
  Report Type: Spontaneous
  Country: US (occurrence: US)
  Receive Date: 20200831
  Receipt Date: 20200901
  Transmission Date: 20201103
  Serious: Yes (Other)
  Sender: FDA-Public Use
  Company Number: US-PFIZER INC-2020333363

PATIENT
  Age: 70 Year
  Sex: Female
  Weight: 71.66 kg

DRUGS (1)
  1. LEVOXYL [Suspect]
     Active Substance: LEVOTHYROXINE SODIUM
     Indication: AUTOIMMUNE THYROIDITIS
     Dosage: 100 UG, DAILY [HER DOSE IS 100MCG. SHE GETS 50MCG TABLETS AND TAKES TWO AT A TIME]
     Dates: start: 2008

REACTIONS (5)
  - Product dose omission issue [Unknown]
  - Tremor [Recovering/Resolving]
  - Arrhythmia [Recovering/Resolving]
  - Feeling abnormal [Recovered/Resolved]
  - Thyroid function test abnormal [Unknown]

NARRATIVE: CASE EVENT DATE: 202007
